FAERS Safety Report 7451748-6 (Version None)
Quarter: 2011Q2

REPORT INFORMATION
  Report Type: 
  Country: None (occurrence: None)
  Receive Date: 20110425
  Receipt Date: 20110411
  Transmission Date: 20111010
  Serious: Yes (Death)
  Sender: FDA-Public Use
  Company Number: OPER20110050

PATIENT
  Age: 48 Year
  Sex: Male
  Weight: 114.3065 kg

DRUGS (2)
  1. ALCOHOL (ETHANOL) [Suspect]
     Indication: PRODUCT USED FOR UNKNOWN INDICATION
  2. OPANA ER [Suspect]
     Indication: DRUG ABUSE

REACTIONS (3)
  - TOXICITY TO VARIOUS AGENTS [None]
  - DRUG ABUSE [None]
  - ALCOHOL POISONING [None]
